FAERS Safety Report 21126101 (Version 1)
Quarter: 2022Q3

REPORT INFORMATION
  Report Type: Spontaneous
  Country: US (occurrence: None)
  Receive Date: 20220724
  Receipt Date: 20220724
  Transmission Date: 20221027
  Serious: No
  Sender: FDA-Public Use
  Company Number: None

PATIENT
  Age: 31 Year
  Sex: Male
  Weight: 58.5 kg

DRUGS (16)
  1. ACETAMINOPHEN\HYDROCODONE BITARTRATE [Suspect]
     Active Substance: ACETAMINOPHEN\HYDROCODONE BITARTRATE
     Indication: Trigeminal neuralgia
     Dosage: FREQUENCY : 3 TIMES A DAY;?
     Route: 048
     Dates: start: 20220721
  2. NORCO [Concomitant]
     Active Substance: ACETAMINOPHEN\HYDROCODONE BITARTRATE
  3. TOPAMAX [Concomitant]
     Active Substance: TOPIRAMATE
  4. PROMETHAZINE [Concomitant]
     Active Substance: PROMETHAZINE HYDROCHLORIDE
  5. AMITRIPTYLINE [Concomitant]
     Active Substance: AMITRIPTYLINE
  6. BUPROPION [Concomitant]
     Active Substance: BUPROPION
  7. LEVETIRACETAM [Concomitant]
     Active Substance: LEVETIRACETAM
  8. BUTORPHANOL [Concomitant]
     Active Substance: BUTORPHANOL
  9. ZOLMITRIPTAN [Concomitant]
     Active Substance: ZOLMITRIPTAN
  10. UBRELVY [Concomitant]
     Active Substance: UBROGEPANT
  11. ALPRAZOLAM [Concomitant]
     Active Substance: ALPRAZOLAM
  12. ZOLPIDEM [Concomitant]
     Active Substance: ZOLPIDEM TARTRATE
  13. ESKETAMINE [Concomitant]
     Active Substance: ESKETAMINE
  14. IBUPROFEN [Concomitant]
     Active Substance: IBUPROFEN
  15. MELATONIN [Concomitant]
     Active Substance: MELATONIN
  16. DIPHENHYDRAMINE [Concomitant]
     Active Substance: DIPHENHYDRAMINE

REACTIONS (4)
  - Product substitution issue [None]
  - Nausea [None]
  - Therapeutic product effect decreased [None]
  - Product formulation issue [None]

NARRATIVE: CASE EVENT DATE: 20220724
